FAERS Safety Report 7557016-6 (Version None)
Quarter: 2011Q2

REPORT INFORMATION
  Report Type: 
  Country: None (occurrence: None)
  Receive Date: 20110620
  Receipt Date: 20110614
  Transmission Date: 20111010
  Serious: Yes (Death)
  Sender: FDA-Public Use
  Company Number: PHHY2011US28189

PATIENT
  Sex: Female
  Weight: 152.8 kg

DRUGS (7)
  1. HERCEPTIN [Concomitant]
     Indication: BREAST CANCER
     Dosage: 6 MG/KG, EVERY 3 WEEKS
     Route: 042
     Dates: start: 20070315, end: 20101109
  2. TYKERB [Concomitant]
     Dosage: 1250 MG, DAILY
     Route: 048
  3. XELODA [Concomitant]
     Indication: BREAST CANCER
     Dosage: 2500 MG/M2, UNK
     Route: 048
     Dates: start: 20100420, end: 20100824
  4. FASLODEX [Concomitant]
     Indication: BREAST CANCER
     Dosage: 250 MG, QMO
     Route: 030
     Dates: start: 20080818, end: 20081125
  5. GEMZAR [Concomitant]
     Indication: BREAST CANCER
     Dosage: 1200 MG/M2, UNK
     Route: 042
     Dates: start: 20090921, end: 20091217
  6. NAVELBINE [Concomitant]
     Indication: BREAST CANCER
     Dosage: 30 MG/M2, DAILY
     Route: 042
     Dates: start: 20100322, end: 20100322
  7. ZOMETA [Suspect]
     Indication: METASTASES TO BONE
     Dosage: 4 MG, QW3
     Route: 042
     Dates: start: 20070314, end: 20101109

REACTIONS (1)
  - CHRONIC OBSTRUCTIVE PULMONARY DISEASE [None]
